FAERS Safety Report 24437977 (Version 2)
Quarter: 2025Q2

REPORT INFORMATION
  Report Type: Report from Study
  Country: JP (occurrence: JP)
  Receive Date: 20241015
  Receipt Date: 20250523
  Transmission Date: 20250716
  Serious: Yes (Other)
  Sender: UCB
  Company Number: JP-UCBJ-CD202401561UCBPHAPROD

PATIENT
  Age: 75 Year
  Sex: Male
  Weight: 72 kg

DRUGS (12)
  1. ROZANOLIXIZUMAB [Suspect]
     Active Substance: ROZANOLIXIZUMAB
     Indication: Myasthenia gravis
     Dosage: 560 MILLIGRAM, WEEKLY (QW)
     Route: 058
     Dates: start: 20240202, end: 20240301
  2. ROZANOLIXIZUMAB [Suspect]
     Active Substance: ROZANOLIXIZUMAB
     Dosage: 420 MILLIGRAM, WEEKLY (QW)
     Route: 058
     Dates: end: 20240301
  3. RAVULIZUMAB [Concomitant]
     Active Substance: RAVULIZUMAB
     Indication: Myasthenia gravis
     Dates: start: 20240426, end: 20240426
  4. RAVULIZUMAB [Concomitant]
     Active Substance: RAVULIZUMAB
     Dates: start: 20240510, end: 20240510
  5. ECULIZUMAB [Concomitant]
     Active Substance: ECULIZUMAB
     Indication: Myasthenia gravis
     Dates: start: 20240705, end: 20240726
  6. ECULIZUMAB [Concomitant]
     Active Substance: ECULIZUMAB
     Dates: start: 20240802
  7. PREDNISOLONE ACETATE [Concomitant]
     Active Substance: PREDNISOLONE ACETATE
     Indication: Myasthenia gravis
     Dosage: 10 MILLIGRAM, ONCE DAILY (QD)
     Route: 048
     Dates: end: 20240523
  8. PREDNISOLONE ACETATE [Concomitant]
     Active Substance: PREDNISOLONE ACETATE
     Dosage: 8 MILLIGRAM, ONCE DAILY (QD)
     Route: 048
     Dates: start: 20240524, end: 20240704
  9. PREDNISOLONE ACETATE [Concomitant]
     Active Substance: PREDNISOLONE ACETATE
     Dosage: 7 MILLIGRAM, ONCE DAILY (QD)
     Route: 048
     Dates: start: 20240705, end: 20240801
  10. PREDNISOLONE ACETATE [Concomitant]
     Active Substance: PREDNISOLONE ACETATE
     Dosage: 6 MILLIGRAM, ONCE DAILY (QD)
     Route: 048
     Dates: start: 20240802, end: 20240912
  11. PREDNISOLONE ACETATE [Concomitant]
     Active Substance: PREDNISOLONE ACETATE
     Dosage: 5 MILLIGRAM, ONCE DAILY (QD)
     Route: 048
     Dates: start: 20240913
  12. IMURAN [Concomitant]
     Active Substance: AZATHIOPRINE
     Indication: Myasthenia gravis
     Dosage: 50 MILLIGRAM, ONCE DAILY (QD)
     Route: 048

REACTIONS (3)
  - Hypogammaglobulinaemia [Recovered/Resolved]
  - Abdominal pain [Recovered/Resolved]
  - Back pain [Recovered/Resolved]

NARRATIVE: CASE EVENT DATE: 20240209
